FAERS Safety Report 18868676 (Version 3)
Quarter: 2021Q1

REPORT INFORMATION
  Report Type: Spontaneous
  Country: US (occurrence: US)
  Receive Date: 20210209
  Receipt Date: 20210308
  Transmission Date: 20210420
  Serious: Yes (Other)
  Sender: FDA-Public Use
  Company Number: US-ALLERGAN-2103682US

PATIENT
  Sex: Female

DRUGS (3)
  1. UNK LUBRICANT [Concomitant]
     Indication: DRY EYE
     Dosage: UNK, QHS
  2. RESTASIS [Suspect]
     Active Substance: CYCLOSPORINE
     Indication: DRY EYE
     Dosage: 2 GTT, BID
     Route: 047
     Dates: start: 2018, end: 20210111
  3. UNK TEARS [Concomitant]
     Indication: DRY EYE

REACTIONS (5)
  - Product dispensing error [Unknown]
  - Eye irritation [Unknown]
  - Dry eye [Not Recovered/Not Resolved]
  - Drug ineffective [Unknown]
  - Cataract [Not Recovered/Not Resolved]
